FAERS Safety Report 10032172 (Version 1)
Quarter: 2014Q1

REPORT INFORMATION
  Report Type: Spontaneous
  Country: FR (occurrence: FR)
  Receive Date: 20140324
  Receipt Date: 20140324
  Transmission Date: 20141002
  Serious: Yes (Hospitalization)
  Sender: FDA-Public Use
  Company Number: PHHY2014FR034233

PATIENT
  Age: 75 Year
  Sex: Female

DRUGS (17)
  1. TEGRETOL [Suspect]
     Dosage: 200 MG, DAILY
     Route: 048
     Dates: end: 201312
  2. TEGRETOL [Suspect]
     Dosage: 400 MG, DAILY
     Route: 048
     Dates: end: 201312
  3. TEGRETOL [Suspect]
     Dosage: 400 MG, DAILY
     Route: 048
     Dates: start: 201312
  4. DEPAKINE CHRONO [Concomitant]
     Dosage: 1 DF, TID
  5. KARDEGIC [Concomitant]
     Dosage: UNK UKN, UNK
  6. FLECAINE [Concomitant]
     Dosage: UNK UKN, UNK
  7. TAHOR [Concomitant]
     Dosage: UNK UKN, UNK
  8. AMLOR [Concomitant]
     Dosage: UNK UKN, UNK
  9. MYSOLINE [Concomitant]
     Dosage: UNK UKN, UNK
  10. NOVONORM [Concomitant]
     Dosage: UNK UKN, UNK
  11. ZYRTEC [Concomitant]
     Dosage: UNK UKN, UNK
  12. LEVOTHYROX [Concomitant]
     Dosage: UNK UKN, UNK
  13. INEXIUM//ESOMEPRAZOLE MAGNESIUM [Concomitant]
     Dosage: UNK UKN, UNK
  14. XANAX [Concomitant]
     Dosage: UNK UKN, UNK
  15. LYRICA [Concomitant]
     Dosage: UNK UKN, UNK
  16. SPIRIVA [Concomitant]
     Dosage: UNK UKN, UNK
  17. OXYGEN [Concomitant]
     Dosage: UNK UKN, UNK

REACTIONS (2)
  - Malaise [Recovered/Resolved]
  - Hyponatraemia [Recovered/Resolved]
